FAERS Safety Report 5940620-6 (Version None)
Quarter: 2008Q4

REPORT INFORMATION
  Report Type: 
  Country: None (occurrence: None)
  Receive Date: 20081103
  Receipt Date: 20081103
  Transmission Date: 20090506
  Serious: Yes (Disabling, Other)
  Sender: FDA-Public Use
  Company Number: None

PATIENT
  Sex: Male
  Weight: 86.1834 kg

DRUGS (1)
  1. VIAGRA [Suspect]
     Indication: LIBIDO INCREASED
     Dosage: 50 MG 12-16 MONTHS

REACTIONS (1)
  - DEAFNESS UNILATERAL [None]
